FAERS Safety Report 9025286 (Version 4)
Quarter: 2014Q2

REPORT INFORMATION
  Report Type: Spontaneous
  Country: US (occurrence: US)
  Receive Date: 20130122
  Receipt Date: 20140402
  Transmission Date: 20141212
  Serious: Yes (Hospitalization, Other)
  Sender: FDA-Public Use
  Company Number: US-MERCK-1301USA010144

PATIENT
  Sex: Female
  Weight: 68.93 kg

DRUGS (13)
  1. FOSAMAX [Suspect]
     Indication: OSTEOPOROSIS
     Dosage: 70 MG, QW
     Route: 048
     Dates: start: 200507, end: 200806
  2. FOSAMAX [Suspect]
     Indication: OSTEOPENIA
  3. CALCIUM (UNSPECIFIED) (+) MAGNESIUM (UNSPECIFIED) [Concomitant]
     Dosage: UNK, BID
     Dates: start: 2002
  4. VITAMIN E [Concomitant]
     Dosage: 1000 IU, 3 X WEEK
     Dates: start: 1990
  5. HORMONES (UNSPECIFIED) [Concomitant]
     Dosage: UNK
     Dates: start: 200402
  6. CARBIDOPA [Concomitant]
     Indication: PARKINSON^S DISEASE
     Dosage: UNK
     Dates: start: 2003
  7. CARBIDOPA [Concomitant]
     Indication: CONVULSION
  8. ENTACAPONE [Concomitant]
     Indication: PARKINSON^S DISEASE
     Dosage: UNK
     Dates: start: 2003
  9. ENTACAPONE [Concomitant]
     Indication: CONVULSION
  10. LEVODOPA [Concomitant]
     Indication: PARKINSON^S DISEASE
     Dosage: UNK
     Dates: start: 2003
  11. LEVODOPA [Concomitant]
     Indication: CONVULSION
  12. ROPINIROLE [Concomitant]
     Indication: PARKINSON^S DISEASE
     Dosage: UNK
     Dates: start: 200305
  13. LEVETIRACETAM [Concomitant]
     Indication: CONVULSION
     Dosage: UNK
     Dates: start: 200505

REACTIONS (16)
  - Intramedullary rod insertion [Unknown]
  - Intramedullary rod insertion [Unknown]
  - Basal cell carcinoma [Unknown]
  - Basal cell carcinoma [Unknown]
  - Squamous cell carcinoma [Unknown]
  - Foot fracture [Recovering/Resolving]
  - Femur fracture [Unknown]
  - Femur fracture [Recovered/Resolved]
  - Adverse event [Unknown]
  - Appendicectomy [Unknown]
  - Hysterectomy [Unknown]
  - Breast operation [Unknown]
  - Tendon sheath lesion excision [Unknown]
  - Bunion operation [Unknown]
  - Varicose vein [Unknown]
  - Arthralgia [Recovered/Resolved]
